FAERS Safety Report 4875691-1 (Version None)
Quarter: 2006Q1

REPORT INFORMATION
  Report Type: 
  Country: None (occurrence: None)
  Receive Date: 20060105
  Receipt Date: 20051221
  Transmission Date: 20060701
  Serious: Yes (Other)
  Sender: FDA-Public Use
  Company Number: B0404673A

PATIENT
  Age: 20 Year
  Sex: Female

DRUGS (1)
  1. ZYBAN [Suspect]
     Indication: EX-SMOKER
     Dosage: 1 TABLET / TWICE PER DAY / ORAL
     Route: 048

REACTIONS (2)
  - BODY TEMPERATURE DECREASED [None]
  - GRAND MAL CONVULSION [None]
